FAERS Safety Report 18459240 (Version 1)
Quarter: 2020Q4

REPORT INFORMATION
  Report Type: Spontaneous
  Country: CR (occurrence: CR)
  Receive Date: 20201103
  Receipt Date: 20201103
  Transmission Date: 20210114
  Serious: Yes (Other)
  Sender: FDA-Public Use
  Company Number: CR-PFIZER INC-2020426113

PATIENT
  Age: 65 Year
  Sex: Female

DRUGS (1)
  1. NORVASC [Suspect]
     Active Substance: AMLODIPINE BESYLATE
     Dosage: 2 DF, DAILY
     Route: 048

REACTIONS (4)
  - Abdominal discomfort [Unknown]
  - Eye disorder [Unknown]
  - Diabetes mellitus [Unknown]
  - Intentional product use issue [Unknown]
